FAERS Safety Report 9697714 (Version 2)
Quarter: 2014Q1

REPORT INFORMATION
  Report Type: Spontaneous
  Country: US (occurrence: US)
  Receive Date: 20131120
  Receipt Date: 20140123
  Transmission Date: 20141002
  Serious: No
  Sender: FDA-Public Use
  Company Number: US-PFIZER INC-2013327670

PATIENT
  Age: 7 Year
  Sex: Male

DRUGS (1)
  1. ADVIL [Suspect]
     Dosage: UNK
     Dates: start: 201311

REACTIONS (3)
  - Urticaria [Recovering/Resolving]
  - Pruritus [Recovering/Resolving]
  - Erythema [Recovering/Resolving]
